FAERS Safety Report 7130351-1 (Version None)
Quarter: 2010Q4

REPORT INFORMATION
  Report Type: 
  Country: None (occurrence: None)
  Receive Date: 20101201
  Receipt Date: 20101029
  Transmission Date: 20110411
  Serious: Yes (Other)
  Sender: FDA-Public Use
  Company Number: GB-AMGEN-GBRCT2010002408

PATIENT

DRUGS (6)
  1. ETANERCEPT [Suspect]
     Indication: RHEUMATOID ARTHRITIS
     Dosage: 25 MG, 2 TIMES/WK
     Dates: start: 20040903
  2. METHOTREXATE [Concomitant]
     Dosage: UNKNOWN
     Dates: start: 20050819
  3. LEVOTHYROXINE SODIUM [Concomitant]
     Dosage: UNKNOWN
  4. CODEINE [Concomitant]
     Dosage: UNKNOWN
  5. PARACETAMOL [Concomitant]
     Dosage: UNKNOWN
  6. CELEBREX [Concomitant]
     Dosage: UNKNOWN

REACTIONS (1)
  - TONGUE CARCINOMA STAGE I [None]
